FAERS Safety Report 5169997-9 (Version None)
Quarter: 2006Q4

REPORT INFORMATION
  Report Type: 
  Country: None (occurrence: None)
  Receive Date: 20061212
  Receipt Date: 20061204
  Transmission Date: 20070319
  Serious: Yes (Hospitalization, Other)
  Sender: FDA-Public Use
  Company Number: JP-JPN-A200605190

PATIENT
  Age: 48 Year
  Sex: Male
  Weight: 66 kg

DRUGS (11)
  1. ALKERAN [Suspect]
     Indication: STEM CELL TRANSPLANT
     Dosage: 150MG PER DAY
     Route: 042
     Dates: start: 20050711, end: 20050712
  2. NEUTROGIN [Concomitant]
     Dates: start: 20050715, end: 20050722
  3. ALESION [Concomitant]
     Route: 048
     Dates: start: 20050708, end: 20050712
  4. ZOVIRAX [Concomitant]
     Dosage: 200MG FIVE TIMES PER DAY
     Route: 048
     Dates: start: 20050708, end: 20050818
  5. CIPROFLOXACIN [Concomitant]
     Route: 048
     Dates: start: 20050708, end: 20051021
  6. FLUCONAZOLE [Concomitant]
     Route: 048
     Dates: start: 20050708, end: 20051021
  7. BACTRIM [Concomitant]
     Dosage: 2TAB TWICE PER DAY
     Route: 048
     Dates: start: 20050801, end: 20051021
  8. GASTER D [Concomitant]
     Route: 048
     Dates: start: 20050708
  9. FULCALIQ [Concomitant]
     Route: 042
     Dates: start: 20050715, end: 20050717
  10. FULCALIQ [Concomitant]
     Route: 042
     Dates: start: 20050718, end: 20050728
  11. PRIMPERAN TAB [Concomitant]
     Dates: start: 20050715, end: 20050728

REACTIONS (2)
  - ALANINE AMINOTRANSFERASE INCREASED [None]
  - ANOREXIA [None]
